FAERS Safety Report 14246302 (Version 1)
Quarter: 2017Q4

REPORT INFORMATION
  Report Type: Spontaneous
  Country: US (occurrence: None)
  Receive Date: 20171201
  Receipt Date: 20171201
  Transmission Date: 20180321
  Serious: Yes (Hospitalization)
  Sender: FDA-Public Use
  Company Number: None

PATIENT
  Age: 33 Year
  Sex: Female
  Weight: 140.4 kg

DRUGS (4)
  1. MERCAPTOPURINE. [Suspect]
     Active Substance: MERCAPTOPURINE
     Dates: end: 20171119
  2. CYTARABINE. [Suspect]
     Active Substance: CYTARABINE
     Dates: end: 20171116
  3. CYCLOPHOSPHAMIDE. [Suspect]
     Active Substance: CYCLOPHOSPHAMIDE
     Dates: end: 20171106
  4. ONCASPAR [Suspect]
     Active Substance: PEGASPARGASE
     Dates: end: 20171120

REACTIONS (7)
  - Hidradenitis [None]
  - Arthralgia [None]
  - Hypotension [None]
  - Blood culture positive [None]
  - Pain [None]
  - Pyrexia [None]
  - Citrobacter test positive [None]

NARRATIVE: CASE EVENT DATE: 20171127
